FAERS Safety Report 19806411 (Version 1)
Quarter: 2021Q3

REPORT INFORMATION
  Report Type: Report from Study
  Country: SA (occurrence: SA)
  Receive Date: 20210908
  Receipt Date: 20210908
  Transmission Date: 20211014
  Serious: Yes (Other)
  Sender: FDA-Public Use
  Company Number: SA-SEATTLE GENETICS-2021SGN04615

PATIENT
  Age: 36 Year
  Sex: Female

DRUGS (2)
  1. BENDAMUSTINE [Suspect]
     Active Substance: BENDAMUSTINE
     Indication: HODGKIN^S DISEASE
     Dosage: UNK
     Route: 065
     Dates: start: 202004
  2. BRENTUXIMAB VEDOTIN?MPI [Suspect]
     Active Substance: BRENTUXIMAB VEDOTIN
     Indication: HODGKIN^S DISEASE
     Dosage: UNK
     Route: 042
     Dates: start: 202004, end: 202102

REACTIONS (2)
  - Hodgkin^s disease recurrent [Not Recovered/Not Resolved]
  - Metastasis [Not Recovered/Not Resolved]

NARRATIVE: CASE EVENT DATE: 202004
